FAERS Safety Report 7701419-3 (Version None)
Quarter: 2011Q3

REPORT INFORMATION
  Report Type: 
  Country: None (occurrence: None)
  Receive Date: 20110819
  Receipt Date: 20110819
  Transmission Date: 20111222
  Serious: No
  Sender: FDA-Public Use
  Company Number: None

PATIENT
  Sex: Female

DRUGS (3)
  1. NAPROXEN (ALEVE) [Concomitant]
  2. XOLAIR [Suspect]
     Dosage: 150 MG
  3. NOVACAIN INJ 1% [Concomitant]

REACTIONS (1)
  - DYSPNOEA [None]
